FAERS Safety Report 16009777 (Version 4)
Quarter: 2020Q1

REPORT INFORMATION
  Report Type: Spontaneous
  Country: US (occurrence: US)
  Receive Date: 20190227
  Receipt Date: 20200309
  Transmission Date: 20200409
  Serious: No
  Sender: FDA-Public Use
  Company Number: US-SA-2019SA053377

PATIENT
  Age: 70 Year
  Sex: Female

DRUGS (2)
  1. KEVZARA [Suspect]
     Active Substance: SARILUMAB
     Indication: SYSTEMIC LUPUS ERYTHEMATOSUS
     Dosage: 200 MG, QOW
     Route: 058
     Dates: start: 201908
  2. KEVZARA [Suspect]
     Active Substance: SARILUMAB
     Indication: RHEUMATOID ARTHRITIS
     Dosage: 200 MG, QOW
     Route: 058
     Dates: start: 201811

REACTIONS (6)
  - Product dose omission [Unknown]
  - Cardiac disorder [Unknown]
  - Traumatic haemorrhage [Unknown]
  - Pain [Unknown]
  - Product use in unapproved indication [Unknown]
  - Limb injury [Unknown]

NARRATIVE: CASE EVENT DATE: 201811
